FAERS Safety Report 4788158-6 (Version None)
Quarter: 2005Q4

REPORT INFORMATION
  Report Type: 
  Country: None (occurrence: None)
  Receive Date: 20051005
  Receipt Date: 20050729
  Transmission Date: 20060501
  Serious: Yes (Other)
  Sender: FDA-Public Use
  Company Number: AU-BOEHRINGER INGELHEIM PHARMACEUTICALS, INC.-2005-BP-13021AU

PATIENT

DRUGS (1)
  1. MOBIC [Suspect]
     Route: 048

REACTIONS (3)
  - ADVERSE EVENT [None]
  - NAUSEA [None]
  - OEDEMA PERIPHERAL [None]
